FAERS Safety Report 6428663-X (Version None)
Quarter: 2009Q4

REPORT INFORMATION
  Report Type: 
  Country: None (occurrence: None)
  Receive Date: 20091105
  Receipt Date: 20091026
  Transmission Date: 20100525
  Serious: Yes (Other)
  Sender: FDA-Public Use
  Company Number: US-JNJFOC-20091008296

PATIENT
  Age: 12 Month
  Sex: Female
  Weight: 9.98 kg

DRUGS (3)
  1. TYLENOL (CAPLET) [Suspect]
     Route: 048
  2. TYLENOL (CAPLET) [Suspect]
     Indication: IRRITABILITY
     Route: 048
  3. PREVACID [Concomitant]
     Indication: HAEMATEMESIS

REACTIONS (2)
  - HAEMATEMESIS [None]
  - TRANSMISSION OF AN INFECTIOUS AGENT VIA A MEDICINAL PRODUCT [None]
